FAERS Safety Report 8264546-0 (Version None)
Quarter: 2012Q2

REPORT INFORMATION
  Report Type: 
  Country: None (occurrence: None)
  Receive Date: 20120406
  Receipt Date: 20120330
  Transmission Date: 20120825
  Serious: Yes (Hospitalization)
  Sender: FDA-Public Use
  Company Number: CN-B.I. PHARMACEUTICALS,INC./RIDGEFIELD-2012-BP-06274YA

PATIENT
  Sex: Male

DRUGS (1)
  1. TAMSULOSIN HCL [Suspect]
     Dosage: 0.2 MG
     Route: 048
     Dates: start: 20120308, end: 20120308

REACTIONS (2)
  - SENSORY DISTURBANCE [None]
  - HYPOAESTHESIA [None]
